FAERS Safety Report 17805075 (Version 6)
Quarter: 2020Q3

REPORT INFORMATION
  Report Type: Spontaneous
  Country: JP (occurrence: JP)
  Receive Date: 20200519
  Receipt Date: 20200928
  Transmission Date: 20201102
  Serious: Yes (Other)
  Sender: FDA-Public Use
  Company Number: JP-SEATTLE GENETICS-2020SGN01821

PATIENT
  Age: 8 Decade
  Sex: Female

DRUGS (5)
  1. VINBLASTINE SULFATE. [Suspect]
     Active Substance: VINBLASTINE SULFATE
     Indication: PRODUCT USED FOR UNKNOWN INDICATION
     Dosage: UNK
     Route: 065
     Dates: start: 20200402
  2. ADCETRIS [Suspect]
     Active Substance: BRENTUXIMAB VEDOTIN
     Indication: HODGKIN^S DISEASE
     Dosage: 1.2 MILLIGRAM/KILOGRAM
     Route: 042
     Dates: start: 20200402
  3. DOXORUBICIN HYDROCHLORIDE. [Suspect]
     Active Substance: DOXORUBICIN HYDROCHLORIDE
     Indication: PRODUCT USED FOR UNKNOWN INDICATION
     Dosage: UNK
     Route: 065
     Dates: start: 20200402
  4. DACARBAZINE. [Suspect]
     Active Substance: DACARBAZINE
     Indication: PRODUCT USED FOR UNKNOWN INDICATION
     Dosage: UNK
     Route: 065
     Dates: start: 20200402
  5. ADCETRIS [Suspect]
     Active Substance: BRENTUXIMAB VEDOTIN
     Dosage: UNK
     Route: 042
     Dates: start: 20200911

REACTIONS (6)
  - White blood cell count decreased [Recovered/Resolved]
  - Arthralgia [Not Recovered/Not Resolved]
  - Neuropathy peripheral [Unknown]
  - Rash erythematous [Recovered/Resolved]
  - Myalgia [Not Recovered/Not Resolved]
  - Neutrophil count decreased [Recovered/Resolved]

NARRATIVE: CASE EVENT DATE: 20200405
